FAERS Safety Report 4558722-8 (Version None)
Quarter: 2005Q1

REPORT INFORMATION
  Report Type: 
  Country: None (occurrence: None)
  Receive Date: 20050119
  Receipt Date: 20050110
  Transmission Date: 20050727
  Serious: Yes (Death, Hospitalization, Other)
  Sender: FDA-Public Use
  Company Number: 2004-10-0069

PATIENT
  Age: 67 Year
  Sex: Female
  Weight: 58.9676 kg

DRUGS (5)
  1. TEMODAR [Suspect]
     Indication: GLIOBLASTOMA MULTIFORME
     Dosage: 115 MG QD ORAL
     Route: 048
     Dates: start: 20040602, end: 20040624
  2. LEVOXYL [Concomitant]
  3. DEXAMETHASONE [Concomitant]
  4. PROTONIX [Concomitant]
  5. RADIATION THERAPY [Concomitant]

REACTIONS (6)
  - APALLIC SYNDROME [None]
  - BONE MARROW DEPRESSION [None]
  - DRUG HYPERSENSITIVITY [None]
  - PANCYTOPENIA [None]
  - RADIATION SKIN INJURY [None]
  - THROMBOCYTOPENIA [None]
